FAERS Safety Report 20884551 (Version 1)
Quarter: 2022Q2

REPORT INFORMATION
  Report Type: Spontaneous
  Country: US (occurrence: None)
  Receive Date: 20220527
  Receipt Date: 20220527
  Transmission Date: 20220721
  Serious: Yes (Hospitalization)
  Sender: FDA-Public Use
  Company Number: None

PATIENT
  Age: 59 Year
  Sex: Female
  Weight: 57.61 kg

DRUGS (14)
  1. INLYTA [Suspect]
     Active Substance: AXITINIB
     Indication: Renal cancer
     Dosage: FREQUENCY : TWICE A DAY;?
     Route: 048
     Dates: start: 20220307, end: 20220501
  2. ALOE VERA LEAF [Concomitant]
     Active Substance: ALOE VERA LEAF
  3. CEFDINIR [Concomitant]
     Active Substance: CEFDINIR
  4. CRESTOR [Concomitant]
     Active Substance: ROSUVASTATIN CALCIUM
  5. ACETAMINOPHEN\HYDROCODONE [Concomitant]
     Active Substance: ACETAMINOPHEN\HYDROCODONE
  6. LEVOTHYROXINE [Concomitant]
     Active Substance: LEVOTHYROXINE
  7. LISINOPRIL [Concomitant]
     Active Substance: LISINOPRIL
  8. LORATADINE [Concomitant]
     Active Substance: LORATADINE
  9. METOPROLOL [Concomitant]
     Active Substance: METOPROLOL
  10. MULTIVITAMIN-MINERALS [Concomitant]
  11. SOURSOP EXTRACT [Concomitant]
  12. TYLENOL [Concomitant]
     Active Substance: ACETAMINOPHEN
  13. VITAMIN B12 [Concomitant]
     Active Substance: CYANOCOBALAMIN
  14. XGEVA [Concomitant]
     Active Substance: DENOSUMAB

REACTIONS (2)
  - Vascular rupture [None]
  - Cerebral ventricle collapse [None]

NARRATIVE: CASE EVENT DATE: 20220501
